FAERS Safety Report 8389239-0 (Version None)
Quarter: 2012Q2

REPORT INFORMATION
  Report Type: 
  Country: None (occurrence: None)
  Receive Date: 20120528
  Receipt Date: 20120522
  Transmission Date: 20120825
  Serious: Yes (Other)
  Sender: FDA-Public Use
  Company Number: PHHY2012FR038599

PATIENT
  Sex: Male
  Weight: 70 kg

DRUGS (6)
  1. ASPIRIN [Concomitant]
     Indication: ATRIAL FIBRILLATION
     Dosage: 160 MG, UNK
  2. PRAVASTATIN [Concomitant]
     Indication: HYPERCHOLESTEROLAEMIA
     Dosage: 40 MG, DAILY
  3. VERAPAMIL [Concomitant]
     Dosage: 240 MG, DAILY
  4. INHALATION THERAPY [Concomitant]
     Dosage: 1 DF, QD
  5. ONBREZ [Suspect]
     Dosage: 150 UG, DAILY
     Dates: start: 20120124, end: 20120303
  6. IRBESARTAN [Concomitant]
     Indication: ATRIAL FIBRILLATION
     Dosage: 300 MG, DAILY

REACTIONS (2)
  - SINUS TACHYCARDIA [None]
  - HEART RATE INCREASED [None]
